FAERS Safety Report 8000136-2 (Version None)
Quarter: 2011Q4

REPORT INFORMATION
  Report Type: 
  Country: None (occurrence: None)
  Receive Date: 20111220
  Receipt Date: 20111220
  Transmission Date: 20120403
  Serious: Yes (Other)
  Sender: FDA-Public Use
  Company Number: None

PATIENT

DRUGS (7)
  1. UNKNOWN [Suspect]
  2. UNKNOWN [Suspect]
  3. UNKNOWN [Suspect]
  4. UNKNOWN [Suspect]
  5. UNKNOWN [Suspect]
  6. FENTANYL [Suspect]
  7. MIDAZOLAM [Suspect]

REACTIONS (1)
  - CIRCUMSTANCE OR INFORMATION CAPABLE OF LEADING TO MEDICATION ERROR [None]
